FAERS Safety Report 23735597 (Version 1)
Quarter: 2024Q2

REPORT INFORMATION
  Report Type: Spontaneous
  Country: US (occurrence: None)
  Receive Date: 20240411
  Receipt Date: 20240411
  Transmission Date: 20240716
  Serious: No
  Sender: FDA-Public Use
  Company Number: None

PATIENT
  Age: 81 Year
  Sex: Male
  Weight: 115.4 kg

DRUGS (18)
  1. DAPTOMYCIN [Suspect]
     Active Substance: DAPTOMYCIN
     Indication: Spinal cord infection
     Dosage: FREQUENCY : DAILY;?
     Route: 042
  2. DAPTOMYCIN [Suspect]
     Active Substance: DAPTOMYCIN
     Indication: Post procedural complication
  3. amlodipine 10 mg PO daily [Concomitant]
  4. apixaban 5 mg PO BID [Concomitant]
  5. vitamin C 500 mg PO daily [Concomitant]
  6. vitamin d3 2000 units PO daily [Concomitant]
  7. B12 1000 mcg PO daily [Concomitant]
  8. docusate 100 mg PO daily [Concomitant]
  9. finasteride 5 mg PO daily [Concomitant]
  10. Flonase 2 sprays each nostril daily PRN allergies [Concomitant]
  11. glucosamine-chondroitin 250-200 mg PO daily [Concomitant]
  12. olmesartan 40 mg po daily [Concomitant]
  13. Miralax 17 g packet PO daily [Concomitant]
  14. senna 8.6 mg PO BID [Concomitant]
  15. tamsulosin 0.4 mg PO daily [Concomitant]
  16. vitamin k2 100 mcg po daily [Concomitant]
  17. zinc 220 mg po daily [Concomitant]
  18. thiamine 250 mg po daily [Concomitant]

REACTIONS (2)
  - Eosinophilic pneumonia [None]
  - Tachypnoea [None]

NARRATIVE: CASE EVENT DATE: 20240205
